FAERS Safety Report 17854905 (Version 1)
Quarter: 2020Q2

REPORT INFORMATION
  Report Type: Spontaneous
  Country: US (occurrence: US)
  Receive Date: 20200603
  Receipt Date: 20200603
  Transmission Date: 20200714
  Serious: No
  Sender: FDA-Public Use
  Company Number: US-PFIZER INC-2020215506

PATIENT

DRUGS (3)
  1. ADVIL MIGRAINE [Suspect]
     Active Substance: IBUPROFEN
     Indication: FIBROMYALGIA
  2. ADVIL MIGRAINE [Suspect]
     Active Substance: IBUPROFEN
     Indication: ARTHRITIS
     Dosage: 1 DF, (USUALLY ONE HOUR BEFORE BED, 2-3X/WEEK)
  3. ADVIL MIGRAINE [Suspect]
     Active Substance: IBUPROFEN
     Indication: INSOMNIA

REACTIONS (3)
  - Intentional product misuse [Unknown]
  - Somnolence [Unknown]
  - Therapeutic response unexpected [Unknown]
